FAERS Safety Report 4651432-8 (Version None)
Quarter: 2005Q2

REPORT INFORMATION
  Report Type: 
  Country: None (occurrence: None)
  Receive Date: 20050404
  Receipt Date: 20041228
  Transmission Date: 20051028
  Serious: Yes (Hospitalization)
  Sender: FDA-Public Use
  Company Number: USA041287049

PATIENT
  Age: 81 Year
  Sex: Male

DRUGS (1)
  1. CYMBALTA [Suspect]
     Indication: DEPRESSION
     Dates: start: 20041001, end: 20041201

REACTIONS (2)
  - CARDIAC FAILURE CONGESTIVE [None]
  - PARAESTHESIA [None]
